FAERS Safety Report 10962618 (Version 1)
Quarter: 2015Q1

REPORT INFORMATION
  Report Type: Spontaneous
  Country: US (occurrence: US)
  Receive Date: 20150327
  Receipt Date: 20150327
  Transmission Date: 20150721
  Serious: No
  Sender: FDA-Public Use
  Company Number: US-009507513-1503USA011142

PATIENT
  Sex: Female

DRUGS (3)
  1. CLINDAMYCIN [Concomitant]
     Active Substance: CLINDAMYCIN\CLINDAMYCIN PHOSPHATE
     Indication: PRODUCT USED FOR UNKNOWN INDICATION
     Dosage: UNK, TID
  2. MIRALAX [Suspect]
     Active Substance: POLYETHYLENE GLYCOL 3350
     Indication: DIVERTICULUM
     Dosage: UNK, QID
     Route: 048
  3. MIRALAX [Suspect]
     Active Substance: POLYETHYLENE GLYCOL 3350
     Indication: GASTROOESOPHAGEAL REFLUX DISEASE

REACTIONS (4)
  - Inappropriate schedule of drug administration [Unknown]
  - Abdominal discomfort [Unknown]
  - Drug prescribing error [Unknown]
  - Product use issue [Unknown]
